FAERS Safety Report 7468966-3 (Version None)
Quarter: 2011Q2

REPORT INFORMATION
  Report Type: 
  Country: None (occurrence: None)
  Receive Date: 20110429
  Receipt Date: 20110419
  Transmission Date: 20111010
  Serious: Yes (Other)
  Sender: FDA-Public Use
  Company Number: TPA2011A01719

PATIENT
  Sex: Male

DRUGS (4)
  1. METFORMIN HCL [Suspect]
  2. GLIMEPIRIDE [Suspect]
  3. ACTOS [Suspect]
     Indication: DIABETES MELLITUS
  4. JANUVIA [Suspect]
     Indication: DIABETES MELLITUS

REACTIONS (4)
  - INJURY [None]
  - WRONG TECHNIQUE IN DRUG USAGE PROCESS [None]
  - ROAD TRAFFIC ACCIDENT [None]
  - HYPOGLYCAEMIA [None]
